FAERS Safety Report 6861944-4 (Version None)
Quarter: 2010Q3

REPORT INFORMATION
  Report Type: 
  Country: None (occurrence: None)
  Receive Date: 20100720
  Receipt Date: 20100720
  Transmission Date: 20110219
  Serious: Yes (Other)
  Sender: FDA-Public Use
  Company Number: None

PATIENT
  Sex: Female

DRUGS (1)
  1. METHOTREXATE [Suspect]
     Indication: RHEUMATOID ARTHRITIS
     Dosage: 12.5MG (0.5ML) EVERY 2 WEEKS INTRA-MUSCULAR
     Route: 030

REACTIONS (2)
  - MENORRHAGIA [None]
  - PAINFUL RESPIRATION [None]
